FAERS Safety Report 24813639 (Version 2)
Quarter: 2025Q1

REPORT INFORMATION
  Report Type: Spontaneous
  Country: US (occurrence: US)
  Receive Date: 20250107
  Receipt Date: 20250228
  Transmission Date: 20250409
  Serious: No
  Sender: LEO PHARM
  Company Number: US-LEO Pharma-376588

PATIENT
  Age: 61 Year
  Sex: Female

DRUGS (1)
  1. ADBRY [Suspect]
     Active Substance: TRALOKINUMAB-LDRM
     Indication: Psoriasis
     Dosage: TREATMENT IS ONGOING
     Route: 058
     Dates: start: 202411

REACTIONS (3)
  - Eye swelling [Unknown]
  - Product use in unapproved indication [Unknown]
  - Headache [Unknown]
